FAERS Safety Report 7743881-6 (Version None)
Quarter: 2011Q3

REPORT INFORMATION
  Report Type: 
  Country: None (occurrence: None)
  Receive Date: 20110912
  Receipt Date: 20110901
  Transmission Date: 20111222
  Serious: Yes (Hospitalization)
  Sender: FDA-Public Use
  Company Number: US-GLAXOSMITHKLINE-A0943195A

PATIENT
  Age: 63 Year
  Sex: Female

DRUGS (12)
  1. ADVAIR DISKUS 100/50 [Suspect]
     Indication: ASTHMA
     Dosage: 2PUFF TWICE PER DAY
     Route: 055
     Dates: start: 20101001
  2. UNKNOWN ANTIBIOTIC [Suspect]
     Indication: ASTHMA
  3. FLUTICASONE PROPIONATE [Concomitant]
  4. CLARITIN [Concomitant]
  5. CALCIUM CARBONATE [Concomitant]
  6. VITAMIN B COMPLEX CAP [Concomitant]
  7. GLUCOSAMINE [Concomitant]
  8. ALBUTEROL SULFATE AUTOHALER [Concomitant]
  9. SINGULAIR [Concomitant]
  10. FISH OIL [Concomitant]
  11. PRILOSEC [Concomitant]
  12. VITAMIN D [Concomitant]

REACTIONS (5)
  - DRUG HYPERSENSITIVITY [None]
  - ASTHMA [None]
  - DRUG INEFFECTIVE [None]
  - PNEUMONIA [None]
  - INCREASED UPPER AIRWAY SECRETION [None]
